FAERS Safety Report 7562334-1 (Version None)
Quarter: 2011Q2

REPORT INFORMATION
  Report Type: 
  Country: None (occurrence: None)
  Receive Date: 20110622
  Receipt Date: 20110616
  Transmission Date: 20111010
  Serious: Yes (Death)
  Sender: FDA-Public Use
  Company Number: AU-JNJFOC-20110607458

PATIENT
  Sex: Male

DRUGS (4)
  1. STELARA [Suspect]
     Route: 058
     Dates: start: 20110404
  2. STELARA [Suspect]
     Route: 058
     Dates: start: 20100723
  3. STELARA [Suspect]
     Route: 058
     Dates: start: 20100108
  4. STELARA [Suspect]
     Indication: PSORIASIS
     Route: 058
     Dates: start: 20101018

REACTIONS (1)
  - DEATH [None]
